FAERS Safety Report 5619570-0 (Version None)
Quarter: 2008Q1

REPORT INFORMATION
  Report Type: 
  Country: None (occurrence: None)
  Receive Date: 20080205
  Receipt Date: 20080205
  Transmission Date: 20080703
  Serious: No
  Sender: FDA-Public Use
  Company Number: None

PATIENT
  Age: 66 Year
  Sex: Female
  Weight: 74.8435 kg

DRUGS (2)
  1. BOTOX [Suspect]
     Indication: MIGRAINE
     Dosage: 100 UNITS IN ONE SESSION CUTANEOUS
     Route: 003
     Dates: start: 20060929, end: 20070223
  2. BOTOX [Suspect]
     Indication: MIGRAINE
     Dosage: 100 UNITS IN ONE SESSION CUTANEOUS
     Route: 003
     Dates: start: 20070223, end: 20080203

REACTIONS (7)
  - DRY MOUTH [None]
  - DYSPHAGIA [None]
  - GINGIVAL DISORDER [None]
  - GLOSSODYNIA [None]
  - ORAL DISCOMFORT [None]
  - SALIVARY GLAND DISORDER [None]
  - TONGUE BITING [None]
